FAERS Safety Report 10668394 (Version 1)
Quarter: 2014Q4

REPORT INFORMATION
  Report Type: Spontaneous
  Country: US (occurrence: None)
  Receive Date: 20141219
  Receipt Date: 20141219
  Transmission Date: 20150529
  Serious: No
  Sender: FDA-Public Use
  Company Number: None

PATIENT
  Age: 51 Year
  Sex: Male
  Weight: 78.5 kg

DRUGS (7)
  1. LAMOTRIGENE 100MG MCKESSON PKGING [Suspect]
     Active Substance: LAMOTRIGINE
     Indication: PSYCHOTIC DISORDER
     Dosage: 1  QHS
     Route: 048
     Dates: start: 20141004, end: 20141204
  2. LAMOTRIGINE. [Concomitant]
     Active Substance: LAMOTRIGINE
  3. BENZTROPINE [Concomitant]
     Active Substance: BENZTROPINE
  4. QUETIAPINE [Concomitant]
     Active Substance: QUETIAPINE
  5. HALDOL DEC [Concomitant]
  6. SIMVASTATIN. [Concomitant]
     Active Substance: SIMVASTATIN
  7. LAMOTRIGENE 100MG MCKESSON PKGING [Suspect]
     Active Substance: LAMOTRIGINE
     Indication: AFFECTIVE DISORDER
     Dosage: 1  QHS
     Route: 048
     Dates: start: 20141004, end: 20141204

REACTIONS (3)
  - Rash erythematous [None]
  - Rash macular [None]
  - Rash [None]

NARRATIVE: CASE EVENT DATE: 20141204
